FAERS Safety Report 13398507 (Version 4)
Quarter: 2017Q4

REPORT INFORMATION
  Report Type: Spontaneous
  Country: US (occurrence: US)
  Receive Date: 20170403
  Receipt Date: 20171031
  Transmission Date: 20180320
  Serious: Yes (Hospitalization)
  Sender: FDA-Public Use
  Company Number: US-VIFOR (INTERNATIONAL) INC.-VIT-2017-03490

PATIENT
  Sex: Male

DRUGS (11)
  1. VELTASSA [Suspect]
     Active Substance: PATIROMER
     Route: 048
     Dates: start: 20170421
  2. PYRIDOXINE HYDROCHLORIDE. [Concomitant]
     Active Substance: PYRIDOXINE HYDROCHLORIDE
  3. GABAPENTIN. [Concomitant]
     Active Substance: GABAPENTIN
  4. VENTOLIN HFA [Concomitant]
     Active Substance: ALBUTEROL SULFATE
  5. PARACETAMOL [Concomitant]
     Active Substance: ACETAMINOPHEN
  6. METOPROLOL TARTRATE. [Concomitant]
     Active Substance: METOPROLOL TARTRATE
  7. FAMOTIDINE. [Concomitant]
     Active Substance: FAMOTIDINE
  8. VELTASSA [Suspect]
     Active Substance: PATIROMER
     Indication: HYPERKALAEMIA
     Route: 048
     Dates: start: 201702, end: 2017
  9. DIAZEPAM. [Concomitant]
     Active Substance: DIAZEPAM
  10. RENVELA [Concomitant]
     Active Substance: SEVELAMER CARBONATE
  11. SENSIPAR [Concomitant]
     Active Substance: CINACALCET HYDROCHLORIDE

REACTIONS (1)
  - Localised infection [Unknown]

NARRATIVE: CASE EVENT DATE: 2017
